FAERS Safety Report 8926680 (Version 4)
Quarter: 2013Q2

REPORT INFORMATION
  Report Type: Spontaneous
  Country: US (occurrence: US)
  Receive Date: 20121127
  Receipt Date: 20130509
  Transmission Date: 20140414
  Serious: No
  Sender: FDA-Public Use
  Company Number: US-PFIZER INC-2012296906

PATIENT
  Age: 62 Year
  Sex: Female
  Weight: 43.99 kg

DRUGS (2)
  1. LYRICA [Suspect]
     Indication: NERVE INJURY
     Dosage: 50MG TO 75MG 2-3 TIMES DAY , AS NEEDED
  2. KLONOPIN [Concomitant]
     Dosage: UNK

REACTIONS (6)
  - Weight increased [Unknown]
  - Somnolence [Recovered/Resolved]
  - Nasopharyngitis [Unknown]
  - Sinusitis [Unknown]
  - Memory impairment [Unknown]
  - Lethargy [Unknown]
